FAERS Safety Report 7150563-0 (Version None)
Quarter: 2010Q4

REPORT INFORMATION
  Report Type: 
  Country: None (occurrence: None)
  Receive Date: 20101206
  Receipt Date: 20101206
  Transmission Date: 20110411
  Serious: Yes (Hospitalization)
  Sender: FDA-Public Use
  Company Number: None

PATIENT
  Age: 64 Year
  Sex: Male
  Weight: 112 kg

DRUGS (1)
  1. TRAMADOL HCL [Suspect]
     Indication: BLOOD CREATINE PHOSPHOKINASE INCREASED
     Dosage: 50 MG QID PO
     Route: 048
     Dates: start: 20100915, end: 20100925

REACTIONS (4)
  - BLOOD CREATINE PHOSPHOKINASE INCREASED [None]
  - BLOOD UREA NITROGEN/CREATININE RATIO INCREASED [None]
  - CHROMATURIA [None]
  - MYALGIA [None]
